FAERS Safety Report 7746765-2 (Version None)
Quarter: 2011Q3

REPORT INFORMATION
  Report Type: 
  Country: None (occurrence: None)
  Receive Date: 20110907
  Receipt Date: 20110830
  Transmission Date: 20111222
  Serious: Yes (Other)
  Sender: FDA-Public Use
  Company Number: 1030761

PATIENT
  Age: 63 Year
  Sex: Male
  Weight: 106 kg

DRUGS (2)
  1. METHOTREXATE [Suspect]
  2. (RITUXIMAB) [Suspect]

REACTIONS (2)
  - GAMMA-GLUTAMYLTRANSFERASE INCREASED [None]
  - ALANINE AMINOTRANSFERASE INCREASED [None]
